FAERS Safety Report 9641618 (Version 2)
Quarter: 2013Q4

REPORT INFORMATION
  Report Type: Report from Study
  Country: BE (occurrence: BE)
  Receive Date: 20131023
  Receipt Date: 20131106
  Transmission Date: 20140711
  Serious: Yes (Hospitalization)
  Sender: FDA-Public Use
  Company Number: BE-AMGEN-BELCT2013074743

PATIENT
  Age: 72 Year
  Sex: Male

DRUGS (12)
  1. ETANERCEPT [Suspect]
     Indication: RHEUMATOID ARTHRITIS
     Dosage: 25 MG, 2 TIMES/WK
     Route: 058
     Dates: start: 20070919, end: 20080411
  2. ETANERCEPT [Suspect]
     Dosage: UNK MG, UNK
     Route: 058
     Dates: start: 20080515
  3. ZYLORIC [Concomitant]
     Dosage: 300 MG, QD
     Route: 048
  4. XANAX [Concomitant]
     Dosage: 0.5 MG, QD
     Route: 065
  5. AMLOR [Concomitant]
     Dosage: 5 MG, QD
     Route: 048
  6. DIAMICRON [Concomitant]
     Dosage: 80 MG, QD
     Route: 065
  7. GLUCOPHAGE [Concomitant]
     Dosage: 500 MG, BID
     Route: 065
  8. LEDERTREXATE                       /00113801/ [Concomitant]
     Dosage: 10 MG, QWK
     Route: 048
  9. MINOCYCLINE [Concomitant]
     Dosage: 50 MG, QD
     Route: 065
  10. PREDNISOLONE [Concomitant]
     Dosage: 10 MG, QD
     Route: 065
  11. BRICANYL [Concomitant]
     Dosage: UNK UNK, ONCE DAILY
     Route: 065
  12. STILNOCT [Concomitant]
     Dosage: 1 DF, QD
     Route: 065

REACTIONS (2)
  - Dyspnoea exertional [Recovered/Resolved]
  - Pulmonary embolism [Recovered/Resolved]
